FAERS Safety Report 7456038-3 (Version None)
Quarter: 2011Q2

REPORT INFORMATION
  Report Type: 
  Country: None (occurrence: None)
  Receive Date: 20110503
  Receipt Date: 20110427
  Transmission Date: 20111010
  Serious: No
  Sender: FDA-Public Use
  Company Number: US-PFIZER INC-2011091040

PATIENT
  Sex: Female
  Weight: 60.77 kg

DRUGS (5)
  1. LYRICA [Suspect]
     Indication: FIBROMYALGIA
     Dosage: 150 MG, 2X/DAY
     Route: 048
     Dates: start: 20090101
  2. PRILOSEC [Concomitant]
     Indication: GASTROOESOPHAGEAL REFLUX DISEASE
     Dosage: 20 MG, 1X/DAY
  3. LYRICA [Suspect]
     Dosage: 150 MG, 1X/DAY
     Route: 048
  4. CLARITIN [Concomitant]
     Indication: HYPERSENSITIVITY
     Dosage: 10 MG, 1X/DAY
  5. TRAZODONE [Concomitant]
     Indication: RESTLESS LEGS SYNDROME
     Dosage: 50 MG, 1X/DAY

REACTIONS (7)
  - EYE DISORDER [None]
  - OCULAR HYPERAEMIA [None]
  - COLD SWEAT [None]
  - CHEST PAIN [None]
  - INSOMNIA [None]
  - HEADACHE [None]
  - BACK PAIN [None]
